FAERS Safety Report 5533670-5 (Version None)
Quarter: 2007Q4

REPORT INFORMATION
  Report Type: 
  Country: None (occurrence: None)
  Receive Date: 20071204
  Receipt Date: 20071120
  Transmission Date: 20080405
  Serious: Yes (Other)
  Sender: FDA-Public Use
  Company Number: CH-ELI_LILLY_AND_COMPANY-CH200711004918

PATIENT
  Age: 10 Year
  Sex: Female
  Weight: 40 kg

DRUGS (1)
  1. HUMALOG [Suspect]
     Dosage: UNK UNK, OTHER
     Route: 058

REACTIONS (2)
  - BLOOD KETONE BODY PRESENT [None]
  - HYPERGLYCAEMIA [None]
